FAERS Safety Report 7251807-7 (Version None)
Quarter: 2011Q1

REPORT INFORMATION
  Report Type: 
  Country: None (occurrence: None)
  Receive Date: 20110128
  Receipt Date: 20100115
  Transmission Date: 20110831
  Serious: No
  Sender: FDA-Public Use
  Company Number: US-ABBOTT-10P-163-0620575-00

PATIENT
  Sex: Female

DRUGS (5)
  1. HUMIRA [Suspect]
     Dates: start: 20091214
  2. HUMIRA [Suspect]
     Dates: start: 20091130, end: 20091130
  3. SYNTHROID [Concomitant]
     Indication: HYPOTHYROIDISM
  4. MULTIVITAMIN [Concomitant]
     Indication: VITAMIN SUPPLEMENTATION
  5. HUMIRA [Suspect]
     Indication: CROHN'S DISEASE
     Dates: start: 20091123, end: 20091123

REACTIONS (4)
  - JOINT STIFFNESS [None]
  - SINUSITIS [None]
  - MUSCULOSKELETAL STIFFNESS [None]
  - ABDOMINAL DISTENSION [None]
